FAERS Safety Report 11149357 (Version 2)
Quarter: 2015Q2

REPORT INFORMATION
  Report Type: Spontaneous
  Country: CN (occurrence: CN)
  Receive Date: 20150529
  Receipt Date: 20150612
  Transmission Date: 20150821
  Serious: No
  Sender: FDA-Public Use
  Company Number: CN-009507513-1505CHN004029

PATIENT
  Age: 34 Year
  Sex: Female

DRUGS (1)
  1. ELOSON [Suspect]
     Active Substance: MOMETASONE
     Indication: PRURITUS
     Dosage: 5 MICROGRAM, QD
     Route: 061
     Dates: start: 20140918, end: 20140918

REACTIONS (1)
  - Hypersensitivity [Recovered/Resolved]

NARRATIVE: CASE EVENT DATE: 20140918
